FAERS Safety Report 7011007-2 (Version None)
Quarter: 2010Q3

REPORT INFORMATION
  Report Type: 
  Country: None (occurrence: None)
  Receive Date: 20100923
  Receipt Date: 20081024
  Transmission Date: 20110219
  Serious: No
  Sender: FDA-Public Use
  Company Number: US-WYE-H06551208

PATIENT
  Sex: Male

DRUGS (3)
  1. EFFEXOR XR [Suspect]
     Dosage: UNKNOWN
  2. PROZAC [Suspect]
     Dosage: UNKNOWN
     Dates: end: 20081001
  3. PROZAC [Suspect]
     Dosage: DOSE WAS INCREASED
     Dates: start: 20081001

REACTIONS (2)
  - ABNORMAL BEHAVIOUR [None]
  - AGGRESSION [None]
